FAERS Safety Report 8593140 (Version 3)
Quarter: 2014Q1

REPORT INFORMATION
  Report Type: Spontaneous
  Country: US (occurrence: US)
  Receive Date: 20120604
  Receipt Date: 20140113
  Transmission Date: 20141002
  Serious: Yes (Disabling)
  Sender: FDA-Public Use
  Company Number: US-ASTRAZENECA-2012SE34820

PATIENT
  Age: 42 Year
  Sex: Female
  Weight: 81.6 kg

DRUGS (7)
  1. NEXIUM [Suspect]
     Dosage: TWO TIMES A DAY
     Route: 048
     Dates: start: 2000, end: 2006
  2. NEXIUM [Suspect]
     Route: 048
     Dates: start: 20080813
  3. CLONIDINE [Concomitant]
     Dates: start: 20051127
  4. FUROSEMIDE [Concomitant]
     Dates: start: 20060331
  5. LORAZEPAM [Concomitant]
     Dates: start: 20051123
  6. PLAVIX [Concomitant]
     Dates: start: 20040120
  7. TOPROL XL [Concomitant]
     Dates: start: 20040106

REACTIONS (10)
  - Lower limb fracture [Unknown]
  - Multiple fractures [Unknown]
  - Diabetes mellitus [Unknown]
  - Osteoporosis [Unknown]
  - Arthritis [Unknown]
  - Chronic obstructive pulmonary disease [Unknown]
  - Foot fracture [Unknown]
  - Ankle fracture [Unknown]
  - Fibula fracture [Unknown]
  - Depression [Unknown]
